FAERS Safety Report 15782482 (Version 1)
Quarter: 2019Q1

REPORT INFORMATION
  Report Type: Spontaneous
  Country: IT (occurrence: IT)
  Receive Date: 20190102
  Receipt Date: 20190102
  Transmission Date: 20190417
  Serious: Yes (Other)
  Sender: FDA-Public Use
  Company Number: IT-PFIZER INC-2018533103

PATIENT
  Age: 43 Year
  Sex: Female

DRUGS (2)
  1. EUTIROX [Concomitant]
     Active Substance: LEVOTHYROXINE SODIUM
  2. XANAX [Suspect]
     Active Substance: ALPRAZOLAM
     Dosage: 20 ML, UNK
     Route: 048
     Dates: start: 20180202, end: 20180202

REACTIONS (4)
  - Agitation [Unknown]
  - Overdose [Unknown]
  - Bradyphrenia [Unknown]
  - Drug abuse [Unknown]

NARRATIVE: CASE EVENT DATE: 20180202
